FAERS Safety Report 18512455 (Version 4)
Quarter: 2021Q2

REPORT INFORMATION
  Report Type: Report from Study
  Country: US (occurrence: US)
  Receive Date: 20201117
  Receipt Date: 20210630
  Transmission Date: 20210717
  Serious: No
  Sender: FDA-Public Use
  Company Number: US-TAKEDA-2020TUS050061

PATIENT
  Sex: Male
  Weight: 104 kg

DRUGS (18)
  1. NORMAL SALINE [Concomitant]
     Active Substance: SODIUM CHLORIDE
  2. SODIUM CHLORIDE. [Concomitant]
     Active Substance: SODIUM CHLORIDE
  3. SOLU?CORTEF [Concomitant]
     Active Substance: HYDROCORTISONE SODIUM SUCCINATE
  4. LOXO 101 [Concomitant]
  5. DIPHENHYDRAMIN [Concomitant]
     Active Substance: DIPHENHYDRAMINE
  6. HUMAN NORMAL IMMUNOGLOBULIN; LIQUID [Suspect]
     Active Substance: HUMAN IMMUNOGLOBULIN G
     Indication: CHRONIC LYMPHOCYTIC LEUKAEMIA
     Dosage: 45 GRAM, Q4WEEKS
     Route: 042
     Dates: start: 20201027
  7. ACETAMINOPHEN. [Concomitant]
     Active Substance: ACETAMINOPHEN
  8. EPINEPHRINE. [Concomitant]
     Active Substance: EPINEPHRINE
  9. FLOMAX [MORNIFLUMATE] [Concomitant]
     Active Substance: MORNIFLUMATE
  10. FAMOTIDINE. [Concomitant]
     Active Substance: FAMOTIDINE
  11. SILDENAFIL CITRATE. [Concomitant]
     Active Substance: SILDENAFIL CITRATE
  12. FENOFIBRATE. [Concomitant]
     Active Substance: FENOFIBRATE
  13. OSTEO BI?FLEX [CHONDROITIN SULFATE;GLUCOSAMINE HYDROCHLORIDE] [Concomitant]
  14. LIDOCAINE. [Concomitant]
     Active Substance: LIDOCAINE
  15. FINASTERIDE. [Concomitant]
     Active Substance: FINASTERIDE
  16. KRILL OIL [Concomitant]
     Active Substance: DIETARY SUPPLEMENT\KRILL OIL
  17. VITAMIN D2 [Concomitant]
     Active Substance: ERGOCALCIFEROL
  18. AMLODIPINE BESILATE [Concomitant]
     Active Substance: AMLODIPINE BESYLATE

REACTIONS (5)
  - Pruritus [Unknown]
  - Rash [Unknown]
  - Headache [Unknown]
  - Hepatic enzyme increased [Unknown]
  - Off label use [Unknown]
